FAERS Safety Report 5149710-1 (Version None)
Quarter: 2006Q4

REPORT INFORMATION
  Report Type: 
  Country: None (occurrence: None)
  Receive Date: 20061108
  Receipt Date: 20061025
  Transmission Date: 20070319
  Serious: Yes (Hospitalization)
  Sender: FDA-Public Use
  Company Number: 2006BI014406

PATIENT
  Age: 52 Year
  Sex: Female

DRUGS (3)
  1. AVONEX [Suspect]
     Indication: MULTIPLE SCLEROSIS
     Dosage: IM
     Route: 030
     Dates: start: 19990101
  2. AVONEX [Suspect]
     Indication: MULTIPLE SCLEROSIS
     Dosage: 30 UG;QW;IM
     Route: 030
     Dates: start: 20060101
  3. STEROIDS [Concomitant]

REACTIONS (7)
  - ARRHYTHMIA [None]
  - CARDIOGENIC SHOCK [None]
  - CARDIOMYOPATHY [None]
  - HYPERTENSION [None]
  - MYOCARDIAL FIBROSIS [None]
  - MYOCARDITIS [None]
  - THROMBOSIS [None]
